FAERS Safety Report 5090596-1 (Version None)
Quarter: 2006Q3

REPORT INFORMATION
  Report Type: 
  Country: None (occurrence: None)
  Receive Date: 20060828
  Receipt Date: 20060616
  Transmission Date: 20061208
  Serious: No
  Sender: FDA-Public Use
  Company Number: US-GLAXOSMITHKLINE-A0609502A

PATIENT
  Age: 24 Year
  Sex: Female
  Weight: 62.3 kg

DRUGS (3)
  1. WELLBUTRIN XL [Suspect]
     Indication: DEPRESSION
     Dosage: 150MG PER DAY
     Route: 048
     Dates: start: 20060614, end: 20060615
  2. BIRTH CONTROL [Concomitant]
  3. ALBUTEROL SPIROS [Concomitant]

REACTIONS (3)
  - PRURITUS [None]
  - RESPIRATORY TRACT CONGESTION [None]
  - URTICARIA [None]
